FAERS Safety Report 4715513-2 (Version None)
Quarter: 2005Q3

REPORT INFORMATION
  Report Type: 
  Country: None (occurrence: None)
  Receive Date: 20050715
  Receipt Date: 20050715
  Transmission Date: 20060218
  Serious: No
  Sender: FDA-Public Use
  Company Number: None

PATIENT
  Sex: Female
  Weight: 65.7716 kg

DRUGS (1)
  1. ZICAM [Suspect]
     Indication: NASAL CONGESTION

REACTIONS (4)
  - AGEUSIA [None]
  - ANOSMIA [None]
  - MULTIPLE ALLERGIES [None]
  - NASAL OPERATION [None]
